FAERS Safety Report 19662872 (Version 1)
Quarter: 2021Q3

REPORT INFORMATION
  Report Type: Report from Study
  Country: US (occurrence: US)
  Receive Date: 20210805
  Receipt Date: 20210805
  Transmission Date: 20211014
  Serious: Yes (Hospitalization)
  Sender: FDA-Public Use
  Company Number: US-KYOWAKIRIN-2020BKK017947

PATIENT

DRUGS (8)
  1. BUROSUMAB [Suspect]
     Active Substance: BUROSUMAB
     Indication: HEREDITARY HYPOPHOSPHATAEMIC RICKETS
     Dosage: 1.0 MG/KG (90.0 MG) ? 2 INJECTIONS (90 MG,1 IN 4 WK)
     Route: 058
     Dates: start: 20190307
  2. BUROSUMAB [Suspect]
     Active Substance: BUROSUMAB
     Dosage: 1.0 MG/KG (90.0 MG) ? 2 INJECTIONS (90 MG,1 IN 4 WK)
     Route: 058
     Dates: start: 20191023
  3. BUROSUMAB [Suspect]
     Active Substance: BUROSUMAB
     Dosage: 1.0 MG/KG (90.0 MG, 1 IN 1 M)
     Route: 058
     Dates: start: 20191001
  4. BUROSUMAB [Suspect]
     Active Substance: BUROSUMAB
     Dosage: 1.0 MG/KG (90.0 MG) ? 2 INJECTIONS (90 MG,1 IN 4 WK)
     Route: 058
     Dates: start: 20200727
  5. METOPROLOL. [Concomitant]
     Active Substance: METOPROLOL
     Indication: HYPERTENSION
     Dosage: 100 MG (50 MG, 2 IN 1 D)
     Route: 048
     Dates: start: 20171025
  6. LOSARTAN. [Concomitant]
     Active Substance: LOSARTAN
     Indication: HYPERTENSION
     Dosage: 50 MG (50 MG, 1 IN 1 D)
     Route: 048
     Dates: start: 20190404
  7. BUROSUMAB [Suspect]
     Active Substance: BUROSUMAB
     Dosage: 40?50 MG (1 IN 2 WK)
     Route: 058
     Dates: start: 20200925, end: 20200925
  8. BUROSUMAB [Suspect]
     Active Substance: BUROSUMAB
     Dosage: 1.0 MG/KG (90.0 MG) ? 2 INJECTIONS (90 MG,1 IN 4 WK)
     Route: 065
     Dates: start: 20210408

REACTIONS (3)
  - Gastroenteritis salmonella [Unknown]
  - Respiratory tract infection [Unknown]
  - Pregnancy [Recovered/Resolved]

NARRATIVE: CASE EVENT DATE: 20210410
